FAERS Safety Report 11947511 (Version 1)
Quarter: 2016Q1

REPORT INFORMATION
  Report Type: Spontaneous
  Country: US (occurrence: US)
  Receive Date: 20160125
  Receipt Date: 20160125
  Transmission Date: 20160526
  Serious: Yes (Hospitalization)
  Sender: FDA-Public Use
  Company Number: US-PROCTER_AND_GAMBLE-GS16003854

PATIENT
  Age: 66 Year
  Sex: Female

DRUGS (3)
  1. BIOTENE FRESH MINT ORIGINAL NOS [Suspect]
     Active Substance: SODIUM FLUORIDE OR SODIUM MONOFLUOROPHOSPHATE
     Route: 002
  2. CREST [Suspect]
     Active Substance: SODIUM FLUORIDE
     Route: 002
  3. PREVIDENT 5000 PLUS SPEARMINT [Suspect]
     Active Substance: SODIUM FLUORIDE
     Dosage: UNK
     Route: 002

REACTIONS (10)
  - Oral discomfort [Not Recovered/Not Resolved]
  - Oesophageal disorder [None]
  - Biliary tract disorder [Not Recovered/Not Resolved]
  - Weight decreased [Not Recovered/Not Resolved]
  - Autoimmune disorder [None]
  - Feeding disorder [Not Recovered/Not Resolved]
  - Hypersensitivity [Not Recovered/Not Resolved]
  - Dysgeusia [Not Recovered/Not Resolved]
  - Nausea [Not Recovered/Not Resolved]
  - Abdominal discomfort [Not Recovered/Not Resolved]
